FAERS Safety Report 12521755 (Version 4)
Quarter: 2016Q3

REPORT INFORMATION
  Report Type: Spontaneous
  Country: US (occurrence: US)
  Receive Date: 20160701
  Receipt Date: 20160928
  Transmission Date: 20161109
  Serious: No
  Sender: FDA-Public Use
  Company Number: PHEH2016US016335

PATIENT
  Age: 64 Year
  Sex: Female
  Weight: 108 kg

DRUGS (1)
  1. VIVELLE-DOT [Suspect]
     Active Substance: ESTRADIOL
     Indication: MENOPAUSE
     Dosage: APPLY 2X PER WEEK
     Route: 062
     Dates: start: 20140508

REACTIONS (3)
  - Drug ineffective [Unknown]
  - Product adhesion issue [Recovered/Resolved]
  - Headache [Unknown]

NARRATIVE: CASE EVENT DATE: 201606
